FAERS Safety Report 5898422-5 (Version None)
Quarter: 2008Q3

REPORT INFORMATION
  Report Type: 
  Country: None (occurrence: None)
  Receive Date: 20080925
  Receipt Date: 20071030
  Transmission Date: 20090109
  Serious: No
  Sender: FDA-Public Use
  Company Number: A0690543A

PATIENT
  Sex: Male

DRUGS (1)
  1. WELLBUTRIN XL [Suspect]
     Indication: DEPRESSION
     Dosage: 150MG PER DAY
     Route: 048
     Dates: start: 20040101

REACTIONS (2)
  - BLOOD HEAVY METAL INCREASED [None]
  - PARAESTHESIA [None]
